FAERS Safety Report 24376010 (Version 1)
Quarter: 2024Q3

REPORT INFORMATION
  Report Type: Spontaneous
  Country: US (occurrence: US)
  Receive Date: 20240928
  Receipt Date: 20240928
  Transmission Date: 20241016
  Serious: No
  Sender: BAYER
  Company Number: US-BAYER-2024A137735

PATIENT
  Age: 75 Year
  Sex: Female

DRUGS (1)
  1. MIRALAX [Suspect]
     Active Substance: POLYETHYLENE GLYCOL 3350
     Dosage: 1 MEASURING CAP
     Route: 048
     Dates: start: 202406, end: 20240925

REACTIONS (1)
  - Product use issue [None]

NARRATIVE: CASE EVENT DATE: 20240601
